FAERS Safety Report 20362079 (Version 1)
Quarter: 2022Q1

REPORT INFORMATION
  Report Type: Spontaneous
  Country: IN (occurrence: IN)
  Receive Date: 20220121
  Receipt Date: 20220121
  Transmission Date: 20220424
  Serious: Yes (Hospitalization, Other)
  Sender: FDA-Public Use
  Company Number: IN-SA-2022SA013328

PATIENT
  Age: 46 Year
  Sex: Female

DRUGS (7)
  1. ANTI-THYMOCYTE GLOBULIN (RABBIT) NOS [Suspect]
     Active Substance: LAPINE T-LYMPHOCYTE IMMUNE GLOBULIN
     Indication: Immunosuppressant drug therapy
     Dosage: 3.5 MG/KG IN THREE DIVIDED DOSES (50 MG IN 250 ML 0.9% NORMAL SALINE) INFUSION
     Route: 042
  2. ANTI-THYMOCYTE GLOBULIN (RABBIT) NOS [Suspect]
     Active Substance: LAPINE T-LYMPHOCYTE IMMUNE GLOBULIN
     Dosage: 50 MG IN 250 ML 0.9% NORMAL SALINE INFUSION
     Route: 042
  3. ANTI-THYMOCYTE GLOBULIN (RABBIT) NOS [Suspect]
     Active Substance: LAPINE T-LYMPHOCYTE IMMUNE GLOBULIN
     Dosage: 50 MG INFUSION OVER 3 HOURS
     Route: 042
  4. PHENIRAMINE [Concomitant]
     Active Substance: PHENIRAMINE
     Indication: Premedication
  5. ACETAMINOPHEN [Concomitant]
     Active Substance: ACETAMINOPHEN
     Indication: Premedication
  6. SODIUM CHLORIDE [Concomitant]
     Active Substance: SODIUM CHLORIDE
     Indication: Vehicle solution use
     Dosage: 250 ML
     Route: 042
  7. SODIUM CHLORIDE [Concomitant]
     Active Substance: SODIUM CHLORIDE
     Dosage: 250 ML
     Route: 042

REACTIONS (8)
  - Acute lung injury [Recovering/Resolving]
  - Dyspnoea [Recovering/Resolving]
  - Lung infiltration [Recovering/Resolving]
  - Rales [Recovering/Resolving]
  - Pulmonary oedema [Recovering/Resolving]
  - Drug hypersensitivity [Recovering/Resolving]
  - Cardiac arrest [Recovered/Resolved]
  - Hypotension [Recovered/Resolved]
